FAERS Safety Report 16495818 (Version 1)
Quarter: 2019Q2

REPORT INFORMATION
  Report Type: Report from Study
  Country: US (occurrence: US)
  Receive Date: 20190628
  Receipt Date: 20190628
  Transmission Date: 20190711
  Serious: No
  Sender: FDA-Public Use
  Company Number: US-INCYTE CORPORATION-2019IN005077

PATIENT

DRUGS (5)
  1. JAKAFI [Suspect]
     Active Substance: RUXOLITINIB
     Indication: POLYCYTHAEMIA VERA
     Dosage: 10 MILLIGRAM, BID
     Route: 048
  2. ASPIRIN                            /00002701/ [Concomitant]
     Active Substance: ASPIRIN
     Indication: PRODUCT USED FOR UNKNOWN INDICATION
     Route: 065
  3. ATORVASTATIN [Concomitant]
     Active Substance: ATORVASTATIN
     Indication: PRODUCT USED FOR UNKNOWN INDICATION
     Route: 065
  4. JAKAFI [Suspect]
     Active Substance: RUXOLITINIB
     Dosage: 15 MILLIGRAM, BID
     Route: 048
  5. JAKAFI [Suspect]
     Active Substance: RUXOLITINIB
     Dosage: 15 MILLIGRAM (3X5MG TABS), BID
     Route: 048

REACTIONS (12)
  - Dizziness [Unknown]
  - Drug ineffective [Unknown]
  - Contusion [Unknown]
  - Photophobia [Unknown]
  - Emotional disorder [Unknown]
  - Therapeutic response unexpected [Unknown]
  - Sensitive skin [Unknown]
  - Haemoglobin abnormal [Unknown]
  - Malaise [Unknown]
  - Blood sodium abnormal [Unknown]
  - Blood pressure abnormal [Unknown]
  - Injection site bruising [Unknown]
